FAERS Safety Report 25374937 (Version 1)
Quarter: 2025Q2

REPORT INFORMATION
  Report Type: Spontaneous
  Country: US (occurrence: None)
  Receive Date: 20250529
  Receipt Date: 20250529
  Transmission Date: 20250716
  Serious: Yes (Other)
  Sender: FDA-CTU
  Company Number: None

PATIENT
  Age: 67 Year
  Sex: Female

DRUGS (2)
  1. LIVDELZI [Suspect]
     Active Substance: SELADELPAR LYSINE
     Dosage: FREQUENCY : DAILY;?
     Route: 048
     Dates: start: 20250109
  2. TRICOR [Suspect]
     Active Substance: FENOFIBRATE

REACTIONS (5)
  - Treatment noncompliance [None]
  - Contraindicated product administered [None]
  - Aspartate aminotransferase increased [None]
  - Alanine aminotransferase increased [None]
  - Therapy cessation [None]
